FAERS Safety Report 20556361 (Version 4)
Quarter: 2022Q2

REPORT INFORMATION
  Report Type: Spontaneous
  Country: DE (occurrence: DE)
  Receive Date: 20220305
  Receipt Date: 20220523
  Transmission Date: 20220721
  Serious: Yes (Other)
  Sender: FDA-Public Use
  Company Number: DE-NOVARTISPH-NVSC2022DE046584

PATIENT
  Sex: Male
  Weight: 130 kg

DRUGS (37)
  1. VALSARTAN [Suspect]
     Active Substance: VALSARTAN
     Indication: Hypertension
     Dosage: 160 MG, QD
     Route: 048
     Dates: start: 20180117, end: 20190314
  2. VALSARTAN [Suspect]
     Active Substance: VALSARTAN
     Dosage: 160 MG, QD
     Route: 048
     Dates: start: 20190314
  3. VALSARTAN [Suspect]
     Active Substance: VALSARTAN
     Dosage: 160 MG, QD
     Route: 048
     Dates: start: 20180413
  4. VALSARTAN [Suspect]
     Active Substance: VALSARTAN
     Indication: Hypertension
     Dosage: 160 MG, QD
     Route: 048
     Dates: start: 201203, end: 20190313
  5. VALSARTAN [Suspect]
     Active Substance: VALSARTAN
     Dosage: 160 MG
     Route: 048
     Dates: start: 20190314
  6. VALSARTAN [Suspect]
     Active Substance: VALSARTAN
     Dosage: 160 MG
     Route: 048
     Dates: start: 20181026
  7. VALSARTAN [Suspect]
     Active Substance: VALSARTAN
     Dosage: 160 MG, QD
     Route: 048
     Dates: start: 20180809
  8. VALSARTAN [Suspect]
     Active Substance: VALSARTAN
     Dosage: 160 MG
     Route: 048
     Dates: start: 20181026
  9. CIPROFLOXACIN HYDROCHLORIDE [Concomitant]
     Active Substance: CIPROFLOXACIN HYDROCHLORIDE
     Indication: Ear pain
     Dosage: UNK
     Route: 065
     Dates: start: 20190723
  10. GENTAMICIN [Concomitant]
     Active Substance: GENTAMICIN
     Indication: Eye inflammation
     Dosage: UNK
     Route: 065
     Dates: start: 20180504
  11. PREDNISOLONE [Concomitant]
     Active Substance: PREDNISOLONE
     Indication: Product used for unknown indication
     Dosage: UNK
     Route: 065
     Dates: start: 20181128
  12. ALLOPURINOL [Concomitant]
     Active Substance: ALLOPURINOL
     Indication: Product used for unknown indication
     Dosage: UNK
     Route: 065
     Dates: start: 201203
  13. ALLOPURINOL [Concomitant]
     Active Substance: ALLOPURINOL
     Dosage: UNK UNK, QD
     Route: 065
     Dates: start: 20181113
  14. ALLOPURINOL [Concomitant]
     Active Substance: ALLOPURINOL
     Dosage: UNK
     Route: 065
     Dates: start: 20191009
  15. ALLOPURINOL [Concomitant]
     Active Substance: ALLOPURINOL
     Dosage: UNK
     Route: 065
     Dates: start: 20190625
  16. ALLOPURINOL [Concomitant]
     Active Substance: ALLOPURINOL
     Dosage: UNK
     Route: 065
     Dates: start: 20190314
  17. NAPROXEN [Concomitant]
     Active Substance: NAPROXEN
     Indication: Pain
     Dosage: UNK
     Route: 065
     Dates: start: 20181210
  18. NAPROXEN [Concomitant]
     Active Substance: NAPROXEN
     Dosage: UNK
     Route: 065
     Dates: start: 20190108
  19. CANDESARTAN CILEXETIL [Concomitant]
     Active Substance: CANDESARTAN CILEXETIL
     Indication: Product used for unknown indication
     Dosage: UNK
     Route: 065
     Dates: start: 201203
  20. CANDESARTAN CILEXETIL [Concomitant]
     Active Substance: CANDESARTAN CILEXETIL
     Dosage: UNK
     Route: 065
     Dates: start: 20190625
  21. CANDESARTAN CILEXETIL [Concomitant]
     Active Substance: CANDESARTAN CILEXETIL
     Dosage: UNK
     Route: 065
     Dates: start: 20191217
  22. CANDESARTAN CILEXETIL [Concomitant]
     Active Substance: CANDESARTAN CILEXETIL
     Dosage: UNK
     Route: 065
     Dates: start: 20191009
  23. ETORICA [Concomitant]
     Indication: Product used for unknown indication
     Dosage: UNK
     Route: 065
     Dates: start: 20190314
  24. PENICILLIN V [Concomitant]
     Active Substance: PENICILLIN V
     Indication: Product used for unknown indication
     Dosage: UNK
     Route: 065
     Dates: start: 20181017
  25. PENICILLIN V [Concomitant]
     Active Substance: PENICILLIN V
     Dosage: UNK
     Route: 065
     Dates: start: 20181113
  26. DICLOFENAC [Concomitant]
     Active Substance: DICLOFENAC
     Indication: Product used for unknown indication
     Dosage: UNK
     Route: 065
     Dates: start: 20181128
  27. SYMBICORT [Concomitant]
     Active Substance: BUDESONIDE\FORMOTEROL FUMARATE DIHYDRATE
     Indication: Product used for unknown indication
     Dosage: UNK
     Route: 065
     Dates: start: 20180219
  28. SYMBICORT [Concomitant]
     Active Substance: BUDESONIDE\FORMOTEROL FUMARATE DIHYDRATE
     Dosage: UNK
     Route: 065
     Dates: start: 20181113
  29. SYMBICORT [Concomitant]
     Active Substance: BUDESONIDE\FORMOTEROL FUMARATE DIHYDRATE
     Dosage: UNK
     Route: 065
     Dates: start: 20180329
  30. SYMBICORT [Concomitant]
     Active Substance: BUDESONIDE\FORMOTEROL FUMARATE DIHYDRATE
     Dosage: UNK
     Route: 065
     Dates: start: 20180413
  31. SYMBICORT [Concomitant]
     Active Substance: BUDESONIDE\FORMOTEROL FUMARATE DIHYDRATE
     Dosage: UNK
     Route: 065
     Dates: start: 20180312
  32. SYMBICORT [Concomitant]
     Active Substance: BUDESONIDE\FORMOTEROL FUMARATE DIHYDRATE
     Dosage: UNK
     Route: 065
     Dates: start: 20180504
  33. SYMBICORT [Concomitant]
     Active Substance: BUDESONIDE\FORMOTEROL FUMARATE DIHYDRATE
     Dosage: UNK
     Route: 065
     Dates: start: 20180528
  34. SYMBICORT [Concomitant]
     Active Substance: BUDESONIDE\FORMOTEROL FUMARATE DIHYDRATE
     Dosage: UNK
     Route: 065
     Dates: start: 20180613
  35. SYMBICORT [Concomitant]
     Active Substance: BUDESONIDE\FORMOTEROL FUMARATE DIHYDRATE
     Dosage: UNK
     Route: 065
     Dates: start: 20180809
  36. SYMBICORT [Concomitant]
     Active Substance: BUDESONIDE\FORMOTEROL FUMARATE DIHYDRATE
     Dosage: UNK
     Route: 065
     Dates: start: 20181206
  37. SYMBICORT [Concomitant]
     Active Substance: BUDESONIDE\FORMOTEROL FUMARATE DIHYDRATE
     Dosage: UNK
     Route: 065
     Dates: start: 20181026

REACTIONS (7)
  - Mental impairment [Not Recovered/Not Resolved]
  - Neuropathic arthropathy [Unknown]
  - Insomnia [Unknown]
  - Impaired quality of life [Unknown]
  - Fear of disease [Unknown]
  - Arthritis [Unknown]
  - Gout [Unknown]
